FAERS Safety Report 18347267 (Version 3)
Quarter: 2020Q4

REPORT INFORMATION
  Report Type: Report from Study
  Country: None (occurrence: CA)
  Receive Date: 20201005
  Receipt Date: 20201028
  Transmission Date: 20210114
  Serious: Yes (Hospitalization, Other)
  Sender: FDA-Public Use
  Company Number: CA-ABBVIE-20K-028-3589292-00

PATIENT
  Sex: Male
  Weight: 135 kg

DRUGS (2)
  1. HUMIRA [Suspect]
     Active Substance: ADALIMUMAB
     Route: 058
     Dates: start: 20200924
  2. HUMIRA [Suspect]
     Active Substance: ADALIMUMAB
     Indication: PRODUCT USED FOR UNKNOWN INDICATION
     Route: 058
     Dates: start: 20130301, end: 202003

REACTIONS (14)
  - Pulmonary embolism [Recovered/Resolved]
  - Orthostatic hypotension [Unknown]
  - Immobile [Unknown]
  - Chills [Unknown]
  - Abscess [Not Recovered/Not Resolved]
  - Syncope [Recovered/Resolved]
  - Incisional drainage [Recovered/Resolved]
  - Fall [Unknown]
  - Skin wound [Not Recovered/Not Resolved]
  - Drug ineffective [Not Recovered/Not Resolved]
  - Abscess limb [Unknown]
  - Hospitalisation [Recovered/Resolved]
  - Anal fistula [Unknown]
  - Incision site haemorrhage [Recovered/Resolved]

NARRATIVE: CASE EVENT DATE: 2020
